FAERS Safety Report 4507830-6 (Version None)
Quarter: 2004Q4

REPORT INFORMATION
  Report Type: 
  Country: None (occurrence: None)
  Receive Date: 20041123
  Receipt Date: 20010604
  Transmission Date: 20050328
  Serious: Yes (Other)
  Sender: FDA-Public Use
  Company Number: PHBS2001BR13522

PATIENT
  Age: 42 Year
  Sex: Male
  Weight: 112 kg

DRUGS (4)
  1. LESCOL XL [Suspect]
     Dosage: 80 MG/DAY
     Route: 048
  2. LESCOL XL [Suspect]
     Dosage: DECRASED
  3. LESCOL XL [Suspect]
     Dosage: INCREASED
  4. ENALAPRIL [Concomitant]
     Dosage: 10 MG ONCE DAILY

REACTIONS (3)
  - ELECTROENCEPHALOGRAM ABNORMAL [None]
  - PALPITATIONS [None]
  - TACHYCARDIA [None]
